FAERS Safety Report 18471769 (Version 1)
Quarter: 2020Q4

REPORT INFORMATION
  Report Type: Spontaneous
  Country: IT (occurrence: IT)
  Receive Date: 20201106
  Receipt Date: 20201106
  Transmission Date: 20210114
  Serious: Yes (Hospitalization)
  Sender: FDA-Public Use
  Company Number: IT-AMGEN-ITASP2020177950

PATIENT
  Age: 67 Year
  Sex: Female

DRUGS (1)
  1. MVASI [Suspect]
     Active Substance: BEVACIZUMAB-AWWB
     Indication: METAPLASTIC BREAST CARCINOMA
     Dosage: 770 MILLIGRAM, CYCLICAL
     Route: 042
     Dates: start: 20201026, end: 20201026

REACTIONS (3)
  - Dyspnoea [Recovering/Resolving]
  - Erythema [Recovering/Resolving]
  - Sense of oppression [Recovering/Resolving]

NARRATIVE: CASE EVENT DATE: 20201026
